FAERS Safety Report 20245243 (Version 2)
Quarter: 2022Q1

REPORT INFORMATION
  Report Type: Spontaneous
  Country: US (occurrence: US)
  Receive Date: 20211229
  Receipt Date: 20220307
  Transmission Date: 20220423
  Serious: Yes (Life-Threatening, Hospitalization)
  Sender: FDA-Public Use
  Company Number: US-AVEO ONCOLOGY-2021-AVEO-US003620

PATIENT

DRUGS (25)
  1. FOTIVDA [Suspect]
     Active Substance: TIVOZANIB HYDROCHLORIDE
     Indication: Renal cell carcinoma
     Dosage: 1.34 MG, DAILY,1.34MG DAILY FOR 21 DAYS ON, THEN 7 DAYS OFF
     Route: 048
     Dates: start: 20211006
  2. SYNTHROID [Concomitant]
     Active Substance: LEVOTHYROXINE SODIUM
  3. XGEVA [Concomitant]
     Active Substance: DENOSUMAB
  4. XYZAL [Concomitant]
     Active Substance: LEVOCETIRIZINE DIHYDROCHLORIDE
  5. DEXAMETHASONE [Concomitant]
     Active Substance: DEXAMETHASONE
  6. BACTRIM [Concomitant]
     Active Substance: SULFAMETHOXAZOLE\TRIMETHOPRIM
  7. MONISTAT [Concomitant]
     Active Substance: MICONAZOLE NITRATE
  8. NYSTATIN [Concomitant]
     Active Substance: NYSTATIN
  9. SENNA [Concomitant]
     Active Substance: SENNA LEAF\SENNOSIDES\SENNOSIDES A AND B
  10. RISPERDAL [Concomitant]
     Active Substance: RISPERIDONE
  11. PREVACID [Concomitant]
     Active Substance: LANSOPRAZOLE
  12. NORVASC [Concomitant]
     Active Substance: AMLODIPINE BESYLATE
  13. MIRALAX [Concomitant]
     Active Substance: POLYETHYLENE GLYCOL 3350
  14. METHADONE [Concomitant]
     Active Substance: METHADONE HYDROCHLORIDE
  15. GABAPENTIN [Concomitant]
     Active Substance: GABAPENTIN
  16. DILAUDID [Concomitant]
     Active Substance: HYDROMORPHONE HYDROCHLORIDE
  17. DENOSUMAB [Concomitant]
     Active Substance: DENOSUMAB
  18. CYMBALTA [Concomitant]
     Active Substance: DULOXETINE HYDROCHLORIDE
  19. CELEBREX [Concomitant]
     Active Substance: CELECOXIB
  20. ATIVAN [Concomitant]
     Active Substance: LORAZEPAM
  21. ACETAMINOPHEN [Concomitant]
     Active Substance: ACETAMINOPHEN
  22. DOCUSATE CALCIUM [Concomitant]
     Active Substance: DOCUSATE CALCIUM
  23. LIPITOR [Concomitant]
     Active Substance: ATORVASTATIN CALCIUM
  24. SPIRONOLACTONE [Concomitant]
     Active Substance: SPIRONOLACTONE
  25. TYLENOL WITH CODEINE [Concomitant]
     Active Substance: ACETAMINOPHEN\CODEINE PHOSPHATE

REACTIONS (5)
  - Pneumonia [Unknown]
  - Pleural effusion [Unknown]
  - Fatigue [Unknown]
  - Constipation [Unknown]
  - Oral pain [Recovering/Resolving]

NARRATIVE: CASE EVENT DATE: 20211218
